FAERS Safety Report 21735032 (Version 10)
Quarter: 2024Q3

REPORT INFORMATION
  Report Type: Spontaneous
  Country: US (occurrence: US)
  Receive Date: 20221215
  Receipt Date: 20240702
  Transmission Date: 20241016
  Serious: Yes (Hospitalization, Disabling)
  Sender: PFIZER
  Company Number: US-PFIZER INC-PV202200103526

PATIENT
  Age: 76 Year
  Sex: Female

DRUGS (3)
  1. IBRANCE [Suspect]
     Active Substance: PALBOCICLIB
     Indication: Neoplasm malignant
     Dosage: 100 MG, DAILY (TAKE 1 TABLET DAILY. TAKE WITH A MEAL ON DAYS 1-21, THEN TAKE 7 DAYS OFF)
     Route: 048
  2. IBRANCE [Suspect]
     Active Substance: PALBOCICLIB
     Indication: Breast cancer stage IV
     Dosage: 100 MG, CYCLIC (1 PO DAILY X 21 DAYS ON, 7 DAYS OFF)
     Route: 048
  3. IBRANCE [Suspect]
     Active Substance: PALBOCICLIB
     Dosage: 125 MG, CYCLIC (Q 28 DAYS 125 MG PO DAYS 1-21 V6.0)
     Route: 048

REACTIONS (3)
  - Shoulder fracture [Unknown]
  - Cerebral disorder [Unknown]
  - Memory impairment [Unknown]
